FAERS Safety Report 7745573-6 (Version None)
Quarter: 2011Q3

REPORT INFORMATION
  Report Type: 
  Country: None (occurrence: None)
  Receive Date: 20110913
  Receipt Date: 20110830
  Transmission Date: 20111222
  Serious: Yes (Other)
  Sender: FDA-Public Use
  Company Number: US-ELI_LILLY_AND_COMPANY-US201011001658

PATIENT
  Sex: Female

DRUGS (33)
  1. FORTEO [Suspect]
     Indication: OSTEOPOROSIS
     Dosage: 20 UG, DAILY (1/D)
     Route: 065
     Dates: start: 20100601
  2. FORTEO [Suspect]
     Dosage: 20 UG, QD
     Route: 065
  3. ASPIRIN [Concomitant]
  4. STOOL SOFTENER [Concomitant]
  5. TRAZODONE HCL [Concomitant]
  6. SYNTHROID [Concomitant]
  7. WELLBATRIN [Concomitant]
  8. PHENERGAN HCL [Concomitant]
     Dosage: UNK, AS NEEDED
  9. MULTI-VITAMIN [Concomitant]
     Dosage: UNK, DAILY (1/D)
  10. OXYBUTYNIN [Concomitant]
  11. FORTEO [Suspect]
     Dosage: 20 UG, DAILY (1/D)
     Route: 065
  12. CALCIUM CARBONATE [Concomitant]
  13. PLAVIX [Concomitant]
  14. ABILIFY [Concomitant]
  15. TORADOL [Concomitant]
     Dosage: UNK, AS NEEDED
  16. RANITIDINE [Concomitant]
  17. SIMVASTATIN [Concomitant]
  18. PAXIL [Concomitant]
  19. LAMICTAL [Concomitant]
  20. FIORICET [Concomitant]
     Dosage: UNK, AS NEEDED
  21. HYDROMORPHONE HCL [Concomitant]
     Dosage: UNK, AS NEEDED
  22. WELLBUTRIN [Concomitant]
  23. HYDROCODONE [Concomitant]
  24. FORTEO [Suspect]
     Dosage: 20 UG, QD
     Route: 065
  25. FORTEO [Suspect]
     Dosage: 20 UG, QD
  26. METOPROLOL SUCCINATE [Concomitant]
  27. VITAMIN B-12 [Concomitant]
  28. CLONAZEPAM [Concomitant]
  29. COGENTIN [Concomitant]
  30. CELEBREX [Concomitant]
  31. VITAMIN E /00110501/ [Concomitant]
  32. NEXIUM [Concomitant]
  33. VITAMIN D [Concomitant]

REACTIONS (9)
  - UPPER LIMB FRACTURE [None]
  - DIZZINESS [None]
  - SPEECH DISORDER [None]
  - FALL [None]
  - PAIN [None]
  - INJECTION SITE PAIN [None]
  - INJECTION SITE HAEMATOMA [None]
  - TOOTH INJURY [None]
  - CEREBROVASCULAR ACCIDENT [None]
